FAERS Safety Report 25357250 (Version 2)
Quarter: 2025Q3

REPORT INFORMATION
  Report Type: Spontaneous
  Country: US (occurrence: US)
  Receive Date: 20250526
  Receipt Date: 20250714
  Transmission Date: 20251020
  Serious: No
  Sender: IPSEN BIOPHARMACEUTICALS, INC.
  Company Number: US-IPSEN Group, Research and Development-2025-12251

PATIENT
  Sex: Female

DRUGS (1)
  1. DYSPORT [Suspect]
     Active Substance: ABOBOTULINUMTOXINA
     Indication: Skin cosmetic procedure

REACTIONS (6)
  - Pain [Unknown]
  - Fatigue [Unknown]
  - Malaise [Unknown]
  - Depressed mood [Recovered/Resolved]
  - Vision blurred [Recovered/Resolved]
  - Influenza like illness [Recovered/Resolved]
